FAERS Safety Report 16128837 (Version 1)
Quarter: 2019Q1

REPORT INFORMATION
  Report Type: Spontaneous
  Country: US (occurrence: US)
  Receive Date: 20190328
  Receipt Date: 20190328
  Transmission Date: 20190418
  Serious: Yes (Other)
  Sender: FDA-Public Use
  Company Number: US-JUBILANT CADISTA PHARMACEUTICALS-2018JUB00304

PATIENT
  Age: 35 Year
  Sex: Female
  Weight: 54.88 kg

DRUGS (2)
  1. PROCHLORPERAZINE MALEATE. [Suspect]
     Active Substance: PROCHLORPERAZINE MALEATE
     Indication: NEUROPATHY PERIPHERAL
     Dosage: 10 MG, UP TO 4X/DAY AS NEEDED (USUALLY 2-4 TIMES PER DAY)
     Route: 048
     Dates: start: 20180509, end: 20180528
  2. PROCHLORPERAZINE MALEATE. [Suspect]
     Active Substance: PROCHLORPERAZINE MALEATE
     Indication: NAUSEA

REACTIONS (12)
  - Migraine [Not Recovered/Not Resolved]
  - Blood pressure abnormal [Not Recovered/Not Resolved]
  - Vomiting [Not Recovered/Not Resolved]
  - Vision blurred [Recovering/Resolving]
  - Dizziness postural [Not Recovered/Not Resolved]
  - Pain [Not Recovered/Not Resolved]
  - Nausea [Unknown]
  - Weight increased [Not Recovered/Not Resolved]
  - Heart rate increased [Not Recovered/Not Resolved]
  - Seizure [Recovering/Resolving]
  - Feeling abnormal [Recovered/Resolved]
  - Myoclonus [Not Recovered/Not Resolved]

NARRATIVE: CASE EVENT DATE: 2018
